FAERS Safety Report 25600703 (Version 1)
Quarter: 2025Q3

REPORT INFORMATION
  Report Type: Spontaneous
  Country: US (occurrence: US)
  Receive Date: 20250724
  Receipt Date: 20250724
  Transmission Date: 20251020
  Serious: No
  Sender: MYLAN
  Company Number: US-MYLANLABS-2025M1060898

PATIENT
  Sex: Female
  Weight: 74.84 kg

DRUGS (12)
  1. BREYNA [Suspect]
     Active Substance: BUDESONIDE\FORMOTEROL FUMARATE
     Indication: Asthma
     Dosage: 320/9 MICROGRAM, BID (TWICE A DAY)
  2. BREYNA [Suspect]
     Active Substance: BUDESONIDE\FORMOTEROL FUMARATE
     Dosage: 320/9 MICROGRAM, BID (TWICE A DAY)
     Route: 055
  3. BREYNA [Suspect]
     Active Substance: BUDESONIDE\FORMOTEROL FUMARATE
     Dosage: 320/9 MICROGRAM, BID (TWICE A DAY)
     Route: 055
  4. BREYNA [Suspect]
     Active Substance: BUDESONIDE\FORMOTEROL FUMARATE
     Dosage: 320/9 MICROGRAM, BID (TWICE A DAY)
  5. ALBUTEROL [Concomitant]
     Active Substance: ALBUTEROL
     Indication: Asthma
  6. ALBUTEROL [Concomitant]
     Active Substance: ALBUTEROL
     Route: 065
  7. ALBUTEROL [Concomitant]
     Active Substance: ALBUTEROL
     Route: 065
  8. ALBUTEROL [Concomitant]
     Active Substance: ALBUTEROL
  9. GLIPIZIDE [Concomitant]
     Active Substance: GLIPIZIDE
     Indication: Type 2 diabetes mellitus
  10. GLIPIZIDE [Concomitant]
     Active Substance: GLIPIZIDE
     Route: 065
  11. GLIPIZIDE [Concomitant]
     Active Substance: GLIPIZIDE
     Route: 065
  12. GLIPIZIDE [Concomitant]
     Active Substance: GLIPIZIDE

REACTIONS (4)
  - Dyspnoea [Unknown]
  - Wrong technique in product usage process [Unknown]
  - Device issue [Unknown]
  - Product quality issue [Unknown]
